FAERS Safety Report 5819390-8 (Version None)
Quarter: 2008Q3

REPORT INFORMATION
  Report Type: 
  Country: None (occurrence: None)
  Receive Date: 20080718
  Receipt Date: 20080711
  Transmission Date: 20090109
  Serious: Yes (Hospitalization)
  Sender: FDA-Public Use
  Company Number: 2008SP007249

PATIENT
  Age: 62 Year
  Sex: Male

DRUGS (11)
  1. TEMODAL [Suspect]
     Indication: MALIGNANT GLIOMA
     Dosage: PO
     Route: 048
  2. DIGOXIN [Suspect]
     Indication: DRUG USE FOR UNKNOWN INDICATION
     Dosage: PO
     Route: 048
  3. METOPROLOL TARTRATE [Concomitant]
  4. FOSAMAX [Concomitant]
  5. MOVICOL [Concomitant]
  6. ISOPTIN SR [Concomitant]
  7. BETAPRED [Concomitant]
  8. FURIX [Concomitant]
  9. IDEOS [Concomitant]
  10. OMEPRAZOLE [Concomitant]
  11. CITALOPRAM HYDROBROMIDE [Concomitant]

REACTIONS (7)
  - BLOOD GLUCOSE INCREASED [None]
  - CARDIOACTIVE DRUG LEVEL INCREASED [None]
  - DRUG THERAPEUTIC INCOMPATIBILITY [None]
  - FATIGUE [None]
  - GENERAL PHYSICAL HEALTH DETERIORATION [None]
  - LOSS OF CONSCIOUSNESS [None]
  - SOMNOLENCE [None]
